FAERS Safety Report 12555579 (Version 1)
Quarter: 2016Q3

REPORT INFORMATION
  Report Type: Report from Study
  Country: CA (occurrence: CA)
  Receive Date: 20160714
  Receipt Date: 20160714
  Transmission Date: 20161109
  Serious: Yes (Other)
  Sender: FDA-Public Use
  Company Number: CA-AMGEN-CANSL2016088975

PATIENT
  Age: 82 Year
  Sex: Female

DRUGS (1)
  1. REPATHA [Suspect]
     Active Substance: EVOLOCUMAB
     Indication: PRODUCT USED FOR UNKNOWN INDICATION
     Dosage: 140 MG/1.0 ML, UNK
     Route: 065
     Dates: start: 20160614

REACTIONS (5)
  - Nasopharyngitis [Unknown]
  - Ocular hyperaemia [Unknown]
  - Throat tightness [Unknown]
  - Dysphagia [Unknown]
  - Vomiting [Unknown]

NARRATIVE: CASE EVENT DATE: 20160615
